FAERS Safety Report 21361753 (Version 1)
Quarter: 2022Q3

REPORT INFORMATION
  Report Type: Spontaneous
  Country: US (occurrence: None)
  Receive Date: 20220921
  Receipt Date: 20220921
  Transmission Date: 20221027
  Serious: No
  Sender: FDA-Public Use
  Company Number: None

PATIENT
  Age: 80 Year
  Sex: Male

DRUGS (1)
  1. HUMIRA [Suspect]
     Active Substance: ADALIMUMAB
     Indication: Colitis ulcerative
     Dosage: 40 MG EVERY 7 DAYS SUBQ?
     Route: 058
     Dates: start: 202109

REACTIONS (3)
  - Device malfunction [None]
  - Injury associated with device [None]
  - Product dose omission issue [None]

NARRATIVE: CASE EVENT DATE: 20220920
